FAERS Safety Report 8287070-8 (Version None)
Quarter: 2012Q2

REPORT INFORMATION
  Report Type: 
  Country: None (occurrence: None)
  Receive Date: 20120416
  Receipt Date: 20110418
  Transmission Date: 20120825
  Serious: No
  Sender: FDA-Public Use
  Company Number: US-ALLERGAN-1105407US

PATIENT
  Age: 82 Year
  Sex: Female

DRUGS (3)
  1. ZADITOR [Concomitant]
  2. ZYMAR [Suspect]
     Indication: EYE INFECTION
     Dosage: UNK
     Dates: start: 20110416
  3. ZITHROMAX [Concomitant]

REACTIONS (1)
  - RASH PAPULAR [None]
